FAERS Safety Report 16715086 (Version 2)
Quarter: 2019Q3

REPORT INFORMATION
  Report Type: Spontaneous
  Country: US (occurrence: US)
  Receive Date: 20190819
  Receipt Date: 20190906
  Transmission Date: 20191005
  Serious: Yes (Other)
  Sender: FDA-Public Use
  Company Number: US-JNJFOC-20190812850

PATIENT
  Age: 51 Year
  Sex: Female
  Weight: 79.45 kg

DRUGS (5)
  1. TREMFYA [Suspect]
     Active Substance: GUSELKUMAB
     Indication: PSORIASIS
     Dosage: PRESCRIPTION # 18043943
     Route: 058
     Dates: start: 20190309
  2. TREMFYA [Suspect]
     Active Substance: GUSELKUMAB
     Dosage: PRESCRIPTION # 18043943
     Route: 058
     Dates: start: 201907
  3. FOLIC ACID. [Concomitant]
     Active Substance: FOLIC ACID
     Indication: TOXICITY TO VARIOUS AGENTS
     Route: 048
     Dates: start: 2014
  4. METHOTREXATE. [Suspect]
     Active Substance: METHOTREXATE
     Indication: THERAPY CESSATION
     Route: 048
     Dates: start: 2014
  5. ESTRADIOL. [Concomitant]
     Active Substance: ESTRADIOL
     Indication: HYSTERECTOMY
     Dosage: 0.5
     Route: 048

REACTIONS (3)
  - Off label use [Unknown]
  - Hepatic enzyme increased [Recovering/Resolving]
  - Hepatic cirrhosis [Not Recovered/Not Resolved]

NARRATIVE: CASE EVENT DATE: 20190605
